FAERS Safety Report 5273690-1 (Version None)
Quarter: 2007Q1

REPORT INFORMATION
  Report Type: 
  Country: None (occurrence: None)
  Receive Date: 20070321
  Receipt Date: 20070321
  Transmission Date: 20070707
  Serious: Yes (Other)
  Sender: FDA-Public Use
  Company Number: None

PATIENT
  Sex: Female
  Weight: 76.2043 kg

DRUGS (3)
  1. ZOCOR [Suspect]
     Indication: HYPERLIPIDAEMIA
     Dosage: 20MG 1 Q EVENING PO
     Route: 048
     Dates: start: 20060206, end: 20060315
  2. LOVASTATIN [Suspect]
  3. PRAVACHOL [Suspect]

REACTIONS (2)
  - MUSCLE SPASMS [None]
  - MYALGIA [None]
